FAERS Safety Report 16877481 (Version 1)
Quarter: 2019Q4

REPORT INFORMATION
  Report Type: Report from Study
  Country: US (occurrence: US)
  Receive Date: 20191002
  Receipt Date: 20191002
  Transmission Date: 20200122
  Serious: Yes (Death)
  Sender: FDA-Public Use
  Company Number: US-PFIZER INC-2019419349

PATIENT

DRUGS (4)
  1. FILGRASTIM [Concomitant]
     Active Substance: FILGRASTIM
     Dosage: 5 UG/KG, DAILY, CYCLE 1 DAY 9-14, CYCLE 1 DAY 16
  2. IRINOTECAN HCL [Suspect]
     Active Substance: IRINOTECAN HYDROCHLORIDE
     Indication: COLORECTAL CANCER METASTATIC
     Dosage: 125 MG/M2, CYCLIC (ON DAYS 8 AND 15) OF A 28-DAY CYCLE
     Route: 042
  3. GUADECITABINE [Suspect]
     Active Substance: GUADECITABINE
     Indication: COLORECTAL CANCER METASTATIC
     Dosage: 45 MG/M2, CYCLIC (ON DAYS 1 TO 5) OF A 28-DAY CYCLE
     Route: 058
  4. PEGFILGRASTIM [Concomitant]
     Active Substance: PEGFILGRASTIM
     Dosage: 6 MG, UNK

REACTIONS (2)
  - Renal failure [Fatal]
  - Dehydration [Fatal]
